FAERS Safety Report 24433230 (Version 2)
Quarter: 2024Q4

REPORT INFORMATION
  Report Type: Spontaneous
  Country: US (occurrence: US)
  Receive Date: 20241014
  Receipt Date: 20241024
  Transmission Date: 20250114
  Serious: Yes (Life-Threatening, Hospitalization)
  Sender: TEVA
  Company Number: US-TEVA-VS-3252946

PATIENT
  Age: 39 Year
  Sex: Female

DRUGS (3)
  1. EPINEPHRINE [Suspect]
     Active Substance: EPINEPHRINE
     Indication: Excessive dynamic airway collapse
     Route: 030
  2. MORPHINE [Suspect]
     Active Substance: MORPHINE
     Indication: Excessive dynamic airway collapse
     Route: 065
  3. MAGNESIUM SULFATE [Suspect]
     Active Substance: MAGNESIUM SULFATE
     Indication: Excessive dynamic airway collapse
     Route: 042

REACTIONS (1)
  - Drug ineffective [Unknown]
